FAERS Safety Report 17814178 (Version 2)
Quarter: 2020Q3

REPORT INFORMATION
  Report Type: Report from Study
  Country: US (occurrence: US)
  Receive Date: 20200521
  Receipt Date: 20200831
  Transmission Date: 20201102
  Serious: No
  Sender: FDA-Public Use
  Company Number: US-AGIOS-2004US01883

PATIENT

DRUGS (2)
  1. FAMOTIDINE. [Concomitant]
     Active Substance: FAMOTIDINE
     Indication: PRODUCT USED FOR UNKNOWN INDICATION
  2. TIBSOVO [Suspect]
     Active Substance: IVOSIDENIB
     Indication: BRAIN NEOPLASM MALIGNANT
     Dosage: 250 MILLIGRAM, 2 TABLETS (500 MG), QD
     Route: 048
     Dates: start: 20200408

REACTIONS (8)
  - Hypersomnia [Unknown]
  - Off label use [Not Recovered/Not Resolved]
  - Diplopia [Unknown]
  - Arthralgia [Unknown]
  - Pain [Unknown]
  - Fluid intake reduced [Unknown]
  - Constipation [Unknown]
  - Neoplasm progression [Unknown]
